FAERS Safety Report 10717909 (Version 1)
Quarter: 2015Q1

REPORT INFORMATION
  Report Type: Report from Study
  Country: DE (occurrence: DE)
  Receive Date: 20150116
  Receipt Date: 20150116
  Transmission Date: 20150721
  Serious: Yes (Hospitalization)
  Sender: FDA-Public Use
  Company Number: DE-ABBVIE-14P-062-1312108-00

PATIENT
  Age: 66 Year
  Sex: Female

DRUGS (2)
  1. DUODOPA [Suspect]
     Active Substance: CARBIDOPA\LEVODOPA
     Dosage: MD 1,0 ML; CRD 1,6 ML/H; CRN 1,3 ML/H; ED 1,1 ML
     Route: 050
     Dates: start: 20130731
  2. DUODOPA [Suspect]
     Active Substance: CARBIDOPA\LEVODOPA
     Indication: PARKINSON^S DISEASE
     Route: 050
     Dates: start: 20130701, end: 20130731

REACTIONS (5)
  - White blood cell count increased [Unknown]
  - Haemoglobin decreased [Unknown]
  - Fall [Recovered/Resolved]
  - Blood potassium increased [Unknown]
  - Rib fracture [Recovered/Resolved]

NARRATIVE: CASE EVENT DATE: 20141119
